FAERS Safety Report 6004376-3 (Version None)
Quarter: 2008Q4

REPORT INFORMATION
  Report Type: 
  Country: None (occurrence: None)
  Receive Date: 20081216
  Receipt Date: 20081204
  Transmission Date: 20090506
  Serious: Yes (Hospitalization)
  Sender: FDA-Public Use
  Company Number: JP-ELI_LILLY_AND_COMPANY-JP200807003304

PATIENT
  Sex: Male
  Weight: 52 kg

DRUGS (10)
  1. ALIMTA [Suspect]
     Indication: PLEURAL MESOTHELIOMA MALIGNANT
     Dosage: 500 MG/M2, OTHER
     Route: 042
     Dates: start: 20080715, end: 20080831
  2. PLATOSIN [Concomitant]
     Indication: PLEURAL MESOTHELIOMA MALIGNANT
     Dosage: 115 MG, UNK
     Route: 042
     Dates: start: 20080715, end: 20080831
  3. PANVITAN [Concomitant]
     Dosage: 1 G, DAILY (1/D)
     Route: 048
     Dates: start: 20080108, end: 20080918
  4. HYDROXOCOBALAMIN ACETATE [Concomitant]
     Dosage: 1 MG, OTHER
     Route: 030
     Dates: start: 20080108, end: 20080710
  5. LOXONIN [Concomitant]
     Indication: PROPHYLAXIS
     Dosage: 180 MG, DAILY (1/D)
     Route: 048
     Dates: start: 20071226, end: 20080909
  6. MUCOSTA [Concomitant]
     Indication: PROPHYLAXIS
     Dosage: 300 MG, DAILY (1/D)
     Route: 048
     Dates: start: 20071226, end: 20080129
  7. BISOLVON [Concomitant]
     Indication: PROPHYLAXIS
     Dosage: 12 MG, DAILY (1/D)
     Route: 048
     Dates: start: 20071226, end: 20080129
  8. KYTRIL [Concomitant]
     Indication: PROPHYLAXIS
     Dosage: 1 D/F, OTHER
     Route: 042
     Dates: start: 20080115, end: 20080320
  9. MANNITOL [Concomitant]
     Indication: PROPHYLAXIS
     Dosage: 200, OTHER
     Route: 042
     Dates: start: 20080115
  10. DECADRON [Concomitant]
     Indication: PROPHYLAXIS
     Dosage: 12 MG, OTHER
     Route: 042
     Dates: start: 20080115

REACTIONS (3)
  - BLOOD PRESSURE DECREASED [None]
  - PYREXIA [None]
  - WHITE BLOOD CELL COUNT DECREASED [None]
